FAERS Safety Report 20541503 (Version 1)
Quarter: 2022Q1

REPORT INFORMATION
  Report Type: Spontaneous
  Country: CA (occurrence: CA)
  Receive Date: 20220302
  Receipt Date: 20220302
  Transmission Date: 20220423
  Serious: Yes (Other)
  Sender: FDA-Public Use
  Company Number: CA-JNJFOC-20211041294

PATIENT
  Age: 27 Year
  Sex: Female
  Weight: 71 kg

DRUGS (1)
  1. INFLIXIMAB [Suspect]
     Active Substance: INFLIXIMAB
     Indication: Colitis ulcerative
     Route: 042

REACTIONS (5)
  - Hidradenitis [Not Recovered/Not Resolved]
  - Furuncle [Not Recovered/Not Resolved]
  - Skin infection [Not Recovered/Not Resolved]
  - Condition aggravated [Not Recovered/Not Resolved]
  - Off label use [Not Recovered/Not Resolved]
